FAERS Safety Report 14707786 (Version 1)
Quarter: 2018Q2

REPORT INFORMATION
  Report Type: Spontaneous
  Country: FR (occurrence: FR)
  Receive Date: 20180403
  Receipt Date: 20180403
  Transmission Date: 20180711
  Serious: Yes (Other)
  Sender: FDA-Public Use
  Company Number: FR-MERCK KGAA-2044983

PATIENT
  Age: 18 Year
  Sex: Female
  Weight: 42 kg

DRUGS (1)
  1. NOVOTHYROX [Suspect]
     Active Substance: LEVOTHYROXINE SODIUM
     Indication: HYPOTHYROIDISM
     Route: 048
     Dates: start: 201703, end: 20171020

REACTIONS (7)
  - Asthenia [Recovering/Resolving]
  - Suicidal ideation [Recovering/Resolving]
  - Psychiatric symptom [Recovering/Resolving]
  - Decreased appetite [Recovering/Resolving]
  - Depression [Recovering/Resolving]
  - Irritability [Recovering/Resolving]
  - Blood thyroid stimulating hormone decreased [Recovering/Resolving]

NARRATIVE: CASE EVENT DATE: 20170721
